FAERS Safety Report 5727585-7 (Version None)
Quarter: 2008Q2

REPORT INFORMATION
  Report Type: 
  Country: None (occurrence: None)
  Receive Date: 20080428
  Receipt Date: 20070730
  Transmission Date: 20081010
  Serious: Yes (Hospitalization)
  Sender: FDA-Public Use
  Company Number: 159730USA

PATIENT

DRUGS (1)
  1. OXYCODONE HCL EXTENDED-RELEASE [Suspect]
     Dosage: (80 MG)

REACTIONS (1)
  - DRUG INEFFECTIVE [None]
